FAERS Safety Report 8548400-2 (Version None)
Quarter: 2012Q3

REPORT INFORMATION
  Report Type: 
  Country: None (occurrence: None)
  Receive Date: 20120730
  Receipt Date: 20120719
  Transmission Date: 20120928
  Serious: Yes (Hospitalization, Other)
  Sender: FDA-Public Use
  Company Number: JP-JNJFOC-20120710242

PATIENT
  Age: 67 Year
  Sex: Female

DRUGS (8)
  1. LAMOTRIGINE [Interacting]
     Indication: DEPRESSION
     Route: 065
  2. CARBAMAZEPINE [Concomitant]
     Indication: BIPOLAR DISORDER
     Route: 065
  3. RISPERIDONE [Suspect]
     Route: 065
  4. LITHIUM CARBONATE [Concomitant]
     Indication: BIPOLAR DISORDER
     Route: 065
  5. RISPERIDONE [Suspect]
     Indication: PRODUCT USED FOR UNKNOWN INDICATION
     Route: 065
  6. RISPERIDONE [Suspect]
     Route: 065
  7. BIPERIDEN HYDROCHLORIDE TAB [Interacting]
     Indication: PRODUCT USED FOR UNKNOWN INDICATION
     Route: 065
  8. VALPROATE SODIUM [Concomitant]
     Indication: BIPOLAR DISORDER
     Route: 065

REACTIONS (2)
  - DRUG INTERACTION [None]
  - NEUROLEPTIC MALIGNANT SYNDROME [None]
